FAERS Safety Report 6116107-7 (Version None)
Quarter: 2009Q1

REPORT INFORMATION
  Report Type: 
  Country: None (occurrence: None)
  Receive Date: 20090314
  Receipt Date: 20081201
  Transmission Date: 20090719
  Serious: No
  Sender: FDA-Public Use
  Company Number: US-ABBOTT-08P-163-0490326-00

PATIENT
  Sex: Male
  Weight: 118.04 kg

DRUGS (9)
  1. HUMIRA [Suspect]
     Indication: PSORIASIS
     Dates: start: 20080101
  2. HUMIRA [Suspect]
     Indication: PSORIATIC ARTHROPATHY
  3. ROSUVASTATIN CALCIUM [Concomitant]
     Indication: BLOOD CHOLESTEROL
     Dates: start: 20050101
  4. HYDROCHLOROTHIAZIDE [Concomitant]
     Indication: BLOOD PRESSURE
     Dates: start: 20080101
  5. MORNIFLUMATE [Concomitant]
     Indication: PROSTATIC DISORDER
     Dates: start: 20080101
  6. NICOTINIC ACID [Concomitant]
     Indication: BLOOD CHOLESTEROL
  7. CENTRUM SILVER [Concomitant]
     Indication: DRUG USE FOR UNKNOWN INDICATION
  8. ACETYLSALICYLIC ACID [Concomitant]
     Indication: DRUG USE FOR UNKNOWN INDICATION
  9. METAMUCIL [Concomitant]
     Indication: DIVERTICULITIS

REACTIONS (3)
  - INCORRECT DOSE ADMINISTERED [None]
  - INJECTION SITE HAEMORRHAGE [None]
  - INJECTION SITE PAIN [None]
